FAERS Safety Report 9930310 (Version 1)
Quarter: 2014Q1

REPORT INFORMATION
  Report Type: Spontaneous
  Country: US (occurrence: US)
  Receive Date: 20140227
  Receipt Date: 20140227
  Transmission Date: 20141002
  Serious: No
  Sender: FDA-Public Use
  Company Number: US-AMGEN-USASP2013081744

PATIENT
  Age: 50 Year
  Sex: Male
  Weight: 104.31 kg

DRUGS (8)
  1. ENBREL [Suspect]
     Indication: PRODUCT USED FOR UNKNOWN INDICATION
     Dosage: 50 MG, QWK
     Route: 058
  2. LISINOPRIL [Concomitant]
     Dosage: 40 MG, UNK
  3. BYSTOLIC [Concomitant]
     Dosage: 5 MG, UNK
  4. HYDROXYCHLOROQUINE [Concomitant]
     Dosage: 200 MG, UNK
  5. HYDROCHLOROTHIAZIDE [Concomitant]
     Dosage: 25 MG, UNK
  6. LEFLUNOMIDE [Concomitant]
     Dosage: 10 MG, UNK
  7. POTASSIUM [Concomitant]
     Dosage: 95 MG, UNK
  8. VITAMIN D3 [Concomitant]
     Dosage: 400 UNIT, UNK

REACTIONS (1)
  - Injection site pruritus [Unknown]
